FAERS Safety Report 9257208 (Version 1)
Quarter: 2013Q2

REPORT INFORMATION
  Report Type: Spontaneous
  Country: US (occurrence: None)
  Receive Date: 20130423
  Receipt Date: 20130423
  Transmission Date: 20140414
  Serious: Yes (Other)
  Sender: FDA-Public Use
  Company Number: USA/USA/13/0029141

PATIENT
  Age: 81 Year
  Sex: Male

DRUGS (2)
  1. SIMVASTATIN (SIMVASTATIN) [Suspect]
     Indication: PRODUCT USED FOR UNKNOWN INDICATION
     Dosage: 80 MG 1 IN 1 DAY, UNKNOWN
  2. GEMFIBROZIL [Suspect]
     Indication: PRODUCT USED FOR UNKNOWN INDICATION
     Dosage: 600 MG, 2 IN 1 D, ORAL

REACTIONS (8)
  - Rhabdomyolysis [None]
  - Renal failure acute [None]
  - Acute coronary syndrome [None]
  - Drug interaction [None]
  - Lethargy [None]
  - Haemodialysis [None]
  - Acute myocardial infarction [None]
  - Bedridden [None]
